FAERS Safety Report 11090550 (Version 2)
Quarter: 2015Q2

REPORT INFORMATION
  Report Type: Report from Study
  Country: CA (occurrence: CA)
  Receive Date: 20150505
  Receipt Date: 20150519
  Transmission Date: 20150821
  Serious: Yes (Hospitalization)
  Sender: FDA-Public Use
  Company Number: PHHY2015CA046728

PATIENT
  Age: 57 Year
  Sex: Female
  Weight: 44.9 kg

DRUGS (3)
  1. AFINITOR [Suspect]
     Active Substance: EVEROLIMUS
     Indication: BREAST CANCER
     Dosage: 5 MG, DAILY QD
     Route: 048
     Dates: start: 20150414
  2. EXEMESTANE. [Concomitant]
     Active Substance: EXEMESTANE
     Indication: PRODUCT USED FOR UNKNOWN INDICATION
     Route: 065
  3. DOMPERIDONE [Concomitant]
     Active Substance: DOMPERIDONE
     Indication: NAUSEA
     Route: 065

REACTIONS (11)
  - Myalgia [Unknown]
  - Vomiting [Unknown]
  - Weight decreased [Unknown]
  - Haemoglobin decreased [Unknown]
  - Platelet count decreased [Unknown]
  - Gastric disorder [Unknown]
  - Heart rate increased [Unknown]
  - Musculoskeletal chest pain [Unknown]
  - Food aversion [Unknown]
  - Vaginal haemorrhage [Unknown]
  - Dysgeusia [Unknown]

NARRATIVE: CASE EVENT DATE: 20150414
